FAERS Safety Report 20480257 (Version 1)
Quarter: 2022Q1

REPORT INFORMATION
  Report Type: Spontaneous
  Country: AU (occurrence: AU)
  Receive Date: 20220216
  Receipt Date: 20220216
  Transmission Date: 20220423
  Serious: Yes (Hospitalization)
  Sender: FDA-Public Use
  Company Number: AU-TEVA-2022-AU-2007359

PATIENT
  Age: 57 Year
  Sex: Female

DRUGS (1)
  1. COPAXONE [Suspect]
     Active Substance: GLATIRAMER ACETATE
     Indication: Multiple sclerosis
     Route: 030
     Dates: start: 20151003, end: 20151014

REACTIONS (12)
  - Arthralgia [Recovered/Resolved]
  - Chills [Recovered/Resolved]
  - C-reactive protein increased [Recovered/Resolved]
  - Injection site irritation [Recovered/Resolved]
  - Liver function test increased [Recovered/Resolved]
  - Lymphopenia [Recovered/Resolved]
  - Mouth ulceration [Recovered/Resolved]
  - Myoclonus [Recovered/Resolved]
  - Neutropenia [Recovered/Resolved]
  - Pyrexia [Recovered/Resolved]
  - Staphylococcal infection [Recovered/Resolved]
  - Tachycardia [Recovered/Resolved]

NARRATIVE: CASE EVENT DATE: 20151014
